FAERS Safety Report 9235481 (Version 1)
Quarter: 2013Q1

REPORT INFORMATION
  Report Type: Spontaneous
  Country: US (occurrence: None)
  Receive Date: 20121031
  Receipt Date: 20121031
  Transmission Date: 20140127
  Serious: Yes (Hospitalization)
  Sender: FDA-Public Use
  Company Number: PHEH2012US015605

PATIENT
  Age: 50 Year
  Sex: Female
  Weight: 65.8 kg

DRUGS (8)
  1. GILENYA [Suspect]
     Route: 048
     Dates: start: 20120807
  2. ASPIRIN (ACETYLSALICYCLIC ACID) [Concomitant]
  3. VITAMIN C [Concomitant]
  4. MAG-OX (MAGNESIUM OXIDE) [Concomitant]
  5. FERROUS GLUCONATE (FERROUS GLUCONATE) [Concomitant]
  6. BACLOFEN (BACLOFEN) [Concomitant]
  7. OMEPRAZOLE (OMEPRAZOLE) [Concomitant]
  8. LOPERAMIDE (LOPERAMIDE) [Concomitant]

REACTIONS (4)
  - Bradycardia [None]
  - Rhinorrhoea [None]
  - Fatigue [None]
  - Blood pressure decreased [None]
